FAERS Safety Report 5836479-8 (Version None)
Quarter: 2008Q3

REPORT INFORMATION
  Report Type: 
  Country: None (occurrence: None)
  Receive Date: 20080806
  Receipt Date: 20080806
  Transmission Date: 20090109
  Serious: Yes (Hospitalization, Other)
  Sender: FDA-Public Use
  Company Number: None

PATIENT
  Age: 30 Year
  Sex: Male

DRUGS (1)
  1. AVEENO SHAVE GEL [Suspect]
     Indication: ILL-DEFINED DISORDER
     Dosage: TOPICAL
     Route: 061
     Dates: start: 20050902

REACTIONS (18)
  - BLINDNESS UNILATERAL [None]
  - CONJUNCTIVAL HAEMORRHAGE [None]
  - CORNEAL ABRASION [None]
  - DEVICE MALFUNCTION [None]
  - DEVICE MISUSE [None]
  - EYE INJURY [None]
  - EYE PAIN [None]
  - EYE SWELLING [None]
  - HEAD INJURY [None]
  - HEADACHE [None]
  - HYPHAEMA [None]
  - IRITIS [None]
  - LACERATION [None]
  - MYDRIASIS [None]
  - PHOTOPHOBIA [None]
  - PUPILS UNEQUAL [None]
  - TEAR DISCOLOURATION [None]
  - VISUAL ACUITY REDUCED [None]
